FAERS Safety Report 16377095 (Version 1)
Quarter: 2019Q2

REPORT INFORMATION
  Report Type: Spontaneous
  Country: US (occurrence: US)
  Receive Date: 20190531
  Receipt Date: 20190531
  Transmission Date: 20190711
  Serious: No
  Sender: FDA-Public Use
  Company Number: US-TEVA-2019-US-1048312

PATIENT
  Age: 62 Year
  Sex: Female

DRUGS (1)
  1. DIAZEPAM TEVA [Suspect]
     Active Substance: DIAZEPAM
     Route: 065
     Dates: start: 20190501

REACTIONS (4)
  - Nasopharyngitis [Not Recovered/Not Resolved]
  - Product substitution issue [Unknown]
  - Drug ineffective [Unknown]
  - Agitation [Unknown]

NARRATIVE: CASE EVENT DATE: 201905
